FAERS Safety Report 7944860-6 (Version None)
Quarter: 2011Q4

REPORT INFORMATION
  Report Type: 
  Country: None (occurrence: None)
  Receive Date: 20111129
  Receipt Date: 20110328
  Transmission Date: 20120403
  Serious: No
  Sender: FDA-Public Use
  Company Number: US-MYLANLABS-2011S1006821

PATIENT
  Age: 48 Year
  Sex: Female

DRUGS (2)
  1. AMLODIPINE BESYLATE [Suspect]
     Indication: BLOOD PRESSURE INCREASED
     Route: 048
  2. WINE [Interacting]
     Route: 048

REACTIONS (2)
  - ALCOHOL INTERACTION [None]
  - PRURITUS GENERALISED [None]
